FAERS Safety Report 7588086-7 (Version None)
Quarter: 2011Q3

REPORT INFORMATION
  Report Type: 
  Country: None (occurrence: None)
  Receive Date: 20110705
  Receipt Date: 20110630
  Transmission Date: 20111222
  Serious: No
  Sender: FDA-Public Use
  Company Number: US-PFIZER INC-2011146803

PATIENT
  Sex: Female

DRUGS (2)
  1. LIPITOR [Suspect]
     Dosage: UNK
     Route: 048
  2. CRESTOR [Suspect]
     Dosage: UNK
     Route: 048

REACTIONS (1)
  - MUSCULAR WEAKNESS [None]
